FAERS Safety Report 21935828 (Version 1)
Quarter: 2023Q1

REPORT INFORMATION
  Report Type: Spontaneous
  Country: US (occurrence: US)
  Receive Date: 20230201
  Receipt Date: 20230201
  Transmission Date: 20230418
  Serious: Yes (Other)
  Sender: FDA-Public Use
  Company Number: US-BAYER-2023A011235

PATIENT

DRUGS (1)
  1. GADAVIST [Suspect]
     Active Substance: GADOBUTROL

REACTIONS (1)
  - Contrast media reaction [None]
